FAERS Safety Report 17632397 (Version 1)
Quarter: 2020Q2

REPORT INFORMATION
  Report Type: Spontaneous
  Country: CZ (occurrence: CZ)
  Receive Date: 20200406
  Receipt Date: 20200406
  Transmission Date: 20200713
  Serious: Yes (Hospitalization, Other)
  Sender: FDA-Public Use
  Company Number: NVSC2020CZ091520

PATIENT
  Age: 69 Year
  Sex: Male

DRUGS (3)
  1. AMIODARONE [Suspect]
     Active Substance: AMIODARONE
     Indication: PRODUCT USED FOR UNKNOWN INDICATION
     Dosage: UNK
     Route: 065
  2. PREDNISONE. [Concomitant]
     Active Substance: PREDNISONE
     Indication: PRODUCT USED FOR UNKNOWN INDICATION
     Dosage: 60 MG, QD
     Route: 065
  3. SOLU-MEDROL [Concomitant]
     Active Substance: METHYLPREDNISOLONE SODIUM SUCCINATE
     Indication: PRODUCT USED FOR UNKNOWN INDICATION
     Dosage: 250 MG
     Route: 065

REACTIONS (12)
  - Renal tubular necrosis [Unknown]
  - Atrial fibrillation [Unknown]
  - Productive cough [Unknown]
  - Haematuria [Unknown]
  - Hypertension [Unknown]
  - Oedema [Unknown]
  - Renal failure [Recovering/Resolving]
  - Ascites [Unknown]
  - Epistaxis [Recovered/Resolved]
  - Normochromic anaemia [Unknown]
  - Anuria [Unknown]
  - Dyspnoea [Unknown]
